FAERS Safety Report 5553824-1 (Version None)
Quarter: 2007Q4

REPORT INFORMATION
  Report Type: 
  Country: None (occurrence: None)
  Receive Date: 20071213
  Receipt Date: 20071206
  Transmission Date: 20080405
  Serious: Yes (Hospitalization, Other)
  Sender: FDA-Public Use
  Company Number: US-ELI_LILLY_AND_COMPANY-US200712001764

PATIENT
  Sex: Male

DRUGS (18)
  1. BYETTA [Suspect]
     Indication: DIABETES MELLITUS
     Dosage: 10 UG, UNKNOWN
     Dates: start: 20051001
  2. BYETTA [Suspect]
     Dosage: 5 UG, UNKNOWN
     Dates: end: 20070901
  3. ALLOPURINOL [Concomitant]
     Dosage: 300 MG, DAILY (1/D)
  4. ASPIRIN [Concomitant]
     Dosage: 81 MG, DAILY (1/D)
  5. CELLCEPT [Concomitant]
     Dosage: 750 MG, 2/D
  6. COUMADIN [Concomitant]
     Dosage: 5 NG, DAILY (1/D)
  7. HUMALOG [Concomitant]
     Dosage: UNK, AS NEEDED
  8. LABETALOL HCL [Concomitant]
     Dosage: 300 MG, 2/D
  9. LANTUS [Concomitant]
     Dosage: 70 U, DAILY (1/D)
  10. MINITRAN [Concomitant]
     Dosage: 0.4 MG, DAILY (1/D)
     Route: 062
  11. NITROSTAT [Concomitant]
     Dosage: 0.4 MG, OTHER
  12. POTASSIUM CHLORIDE [Concomitant]
     Dosage: 200 MG, DAILY (1/D)
  13. PREDNISONE [Concomitant]
     Dosage: 5 UNK, DAILY (1/D)
  14. RAPAMUNE [Concomitant]
     Dosage: 3 MG, DAILY (1/D)
  15. TORSEMIDE [Concomitant]
     Dosage: 100 NG, 2/D
  16. VITAMIN D [Concomitant]
     Dosage: 50000 IU, WEEKLY (1/W)
  17. ZETIA [Concomitant]
     Dosage: 10 MG, DAILY (1/D)
  18. ALDACTONE [Concomitant]
     Dosage: UNK, DAILY (1/D)

REACTIONS (6)
  - BLOOD CHOLESTEROL INCREASED [None]
  - BLOOD GLUCOSE INCREASED [None]
  - BLOOD TRIGLYCERIDES INCREASED [None]
  - PANCREAS TRANSPLANT [None]
  - PANCREATITIS [None]
  - RENAL TRANSPLANT [None]
